FAERS Safety Report 15361811 (Version 1)
Quarter: 2018Q3

REPORT INFORMATION
  Report Type: Spontaneous
  Country: US (occurrence: US)
  Receive Date: 20180907
  Receipt Date: 20180907
  Transmission Date: 20181010
  Serious: No
  Sender: FDA-Public Use
  Company Number: US-STRONGBRIDGE BIOPHARMA-2018-STR-000283

PATIENT
  Age: 33 Year
  Sex: Male

DRUGS (2)
  1. KEVEYIS [Suspect]
     Active Substance: DICHLORPHENAMIDE
     Dosage: 1/2 TABLET TWICE DAILY
     Route: 048
     Dates: start: 2018
  2. KEVEYIS [Suspect]
     Active Substance: DICHLORPHENAMIDE
     Indication: PRODUCT USED FOR UNKNOWN INDICATION
     Dosage: 1/6 TABLET
     Route: 048
     Dates: start: 20180814

REACTIONS (1)
  - Fluid retention [Recovering/Resolving]

NARRATIVE: CASE EVENT DATE: 20180817
